FAERS Safety Report 7137018-4 (Version None)
Quarter: 2010Q4

REPORT INFORMATION
  Report Type: 
  Country: None (occurrence: None)
  Receive Date: 20101206
  Receipt Date: 20060210
  Transmission Date: 20110411
  Serious: Yes (Death)
  Sender: FDA-Public Use
  Company Number: US-ACTELION-A-US2005-09364

PATIENT

DRUGS (5)
  1. BOSENTAN TABLET 62.5 MG US [Suspect]
     Indication: PULMONARY ARTERIAL HYPERTENSION
     Dosage: 31.25 MG, BID
     Route: 048
     Dates: start: 20030715, end: 20040901
  2. VIAGRA [Concomitant]
     Dates: start: 20040115
  3. LASIX [Concomitant]
     Dates: start: 20030701
  4. SPIRONOLACTONE [Concomitant]
     Dates: start: 20030701
  5. PEPCID [Concomitant]

REACTIONS (2)
  - DEATH [None]
  - LIVER FUNCTION TEST ABNORMAL [None]
